FAERS Safety Report 5950953-5 (Version None)
Quarter: 2008Q4

REPORT INFORMATION
  Report Type: 
  Country: None (occurrence: None)
  Receive Date: 20081112
  Receipt Date: 20081031
  Transmission Date: 20090506
  Serious: Yes (Other)
  Sender: FDA-Public Use
  Company Number: US-PFIZER INC-2008086517

PATIENT
  Sex: Male
  Weight: 101 kg

DRUGS (4)
  1. PROCARDIA XL [Suspect]
     Indication: HYPERTENSION
  2. PROCARDIA XL [Suspect]
  3. PROCARDIA XL [Suspect]
  4. XANAX [Concomitant]
     Dosage: DAILY DOSE:1MG

REACTIONS (5)
  - BLOOD PRESSURE DECREASED [None]
  - HEART RATE IRREGULAR [None]
  - INTENTIONAL DRUG MISUSE [None]
  - TEETH BRITTLE [None]
  - TOOTH LOSS [None]
